FAERS Safety Report 4398427-X (Version None)
Quarter: 2004Q3

REPORT INFORMATION
  Report Type: 
  Country: None (occurrence: None)
  Receive Date: 20040715
  Receipt Date: 20040419
  Transmission Date: 20050211
  Serious: Yes (Hospitalization)
  Sender: FDA-Public Use
  Company Number: JP-ROCHE-365310

PATIENT
  Age: 1 Year
  Sex: Female
  Weight: 10 kg

DRUGS (1)
  1. OSELTAMIVIR [Suspect]
     Route: 048
     Dates: start: 20040116, end: 20040120

REACTIONS (5)
  - ANXIETY [None]
  - DEHYDRATION [None]
  - DIARRHOEA [None]
  - OTITIS MEDIA [None]
  - PAIN [None]
